FAERS Safety Report 9094841 (Version 1)
Quarter: 2013Q1

REPORT INFORMATION
  Report Type: Spontaneous
  Country: US (occurrence: US)
  Receive Date: 20130220
  Receipt Date: 20130220
  Transmission Date: 20140127
  Serious: No
  Sender: FDA-Public Use
  Company Number: US-BIOGENIDEC-2013BI014454

PATIENT
  Age: 19 Year
  Sex: Female

DRUGS (2)
  1. TYSABRI [Suspect]
     Indication: MULTIPLE SCLEROSIS
     Route: 042
     Dates: start: 20120518
  2. BACLOFEN [Concomitant]
     Indication: PAIN IN EXTREMITY

REACTIONS (3)
  - Muscle twitching [Recovered/Resolved]
  - Diplopia [Not Recovered/Not Resolved]
  - Spinal pain [Recovered/Resolved]
